FAERS Safety Report 19420380 (Version 1)
Quarter: 2021Q2

REPORT INFORMATION
  Report Type: Spontaneous
  Country: US (occurrence: US)
  Receive Date: 20210615
  Receipt Date: 20210615
  Transmission Date: 20210717
  Serious: Yes (Other)
  Sender: FDA-Public Use
  Company Number: US-MALLINCKRODT PHARMACEUTICALS-T202102514

PATIENT
  Age: 35 Year
  Sex: Female

DRUGS (6)
  1. H.P. ACTHAR [Suspect]
     Active Substance: CORTICOTROPIN
     Indication: OCULAR SARCOIDOSIS
     Dosage: 80 UNITS TWICE WEEKLY FOR 7 MONTHS
     Route: 058
  2. PREDNISONE. [Concomitant]
     Active Substance: PREDNISONE
     Indication: CUTANEOUS SARCOIDOSIS
     Dosage: UNK
     Route: 065
  3. METHYLPREDNISOLONE. [Concomitant]
     Active Substance: METHYLPREDNISOLONE
     Indication: PULMONARY SARCOIDOSIS
     Dosage: GREATER THAN OR EQUAL TO 8 MG DAILY
     Route: 065
  4. H.P. ACTHAR [Suspect]
     Active Substance: CORTICOTROPIN
     Indication: OPTIC NEURITIS
     Dosage: 40 UNITS TWICE WEEKLY FOR 1 MONTH
     Route: 058
  5. PREDNISONE. [Concomitant]
     Active Substance: PREDNISONE
     Indication: PULMONARY SARCOIDOSIS
  6. METHYLPREDNISOLONE. [Concomitant]
     Active Substance: METHYLPREDNISOLONE
     Indication: CUTANEOUS SARCOIDOSIS
     Dosage: UNK
     Route: 065

REACTIONS (5)
  - Alopecia [Unknown]
  - Therapeutic product effect incomplete [Unknown]
  - Ocular sarcoidosis [Unknown]
  - Condition aggravated [Unknown]
  - Hypertensive crisis [Unknown]
